FAERS Safety Report 8381097-3 (Version None)
Quarter: 2012Q2

REPORT INFORMATION
  Report Type: 
  Country: None (occurrence: None)
  Receive Date: 20120427
  Receipt Date: 20120420
  Transmission Date: 20120825
  Serious: Yes (Death)
  Sender: FDA-Public Use
  Company Number: 2012031871

PATIENT
  Age: 55 Year
  Sex: Female

DRUGS (2)
  1. PRIVIGEN [Suspect]
     Indication: ANAEMIA HAEMOLYTIC AUTOIMMUNE
     Dosage: 80 G, 4 VIAL OF 20 G, INTRAVENOUS (NOT OTHERWISE SPECIFIED)
     Route: 042
     Dates: start: 20120107, end: 20120107
  2. PRIVIGEN [Suspect]
     Indication: ANAEMIA HAEMOLYTIC AUTOIMMUNE
     Dosage: 80 G, 4 VIAL OF 20 G, INTRAVENOUS (NOT OTHERWISE SPECIFIED)
     Route: 042
     Dates: start: 20120105, end: 20120106

REACTIONS (12)
  - ABDOMINAL PAIN [None]
  - MULTI-ORGAN FAILURE [None]
  - OFF LABEL USE [None]
  - HYPOXIA [None]
  - ACUTE RESPIRATORY DISTRESS SYNDROME [None]
  - CYTOLYTIC HEPATITIS [None]
  - BACK PAIN [None]
  - PULMONARY INTERSTITIAL EMPHYSEMA SYNDROME [None]
  - HAEMODYNAMIC INSTABILITY [None]
  - AGITATION [None]
  - OLIGURIA [None]
  - ANURIA [None]
